FAERS Safety Report 6883014-1 (Version None)
Quarter: 2010Q3

REPORT INFORMATION
  Report Type: 
  Country: None (occurrence: None)
  Receive Date: 20100702
  Receipt Date: 20100414
  Transmission Date: 20110219
  Serious: Yes (Other)
  Sender: FDA-Public Use
  Company Number: 2010047919

PATIENT
  Age: 44 Year
  Sex: Female
  Weight: 63.5 kg

DRUGS (2)
  1. ZOLOFT [Suspect]
     Indication: ANXIETY
     Dosage: 37.5 MG, DAILY, ORAL
     Route: 048
     Dates: start: 20090101
  2. ZOLOFT [Suspect]
     Indication: DEPRESSION
     Dosage: 37.5 MG, DAILY, ORAL
     Route: 048
     Dates: start: 20090101

REACTIONS (1)
  - TINNITUS [None]
